FAERS Safety Report 4913924-3 (Version None)
Quarter: 2006Q1

REPORT INFORMATION
  Report Type: 
  Country: None (occurrence: None)
  Receive Date: 20060216
  Receipt Date: 20050222
  Transmission Date: 20060701
  Serious: Yes (Hospitalization, Disabling)
  Sender: FDA-Public Use
  Company Number: US-MERCK-0502USA03186

PATIENT
  Age: 63 Year
  Sex: Male
  Weight: 100 kg

DRUGS (20)
  1. VIOXX [Suspect]
     Indication: BACK PAIN
     Route: 048
     Dates: start: 20021201, end: 20040101
  2. VIOXX [Suspect]
     Indication: SHOULDER PAIN
     Route: 048
     Dates: start: 20021201, end: 20040101
  3. ZOCOR [Concomitant]
     Route: 048
  4. NEXIUM [Concomitant]
     Route: 065
  5. AMBIEN [Concomitant]
     Route: 065
  6. XANAX [Concomitant]
     Route: 065
  7. ALLEGRA [Concomitant]
     Route: 065
  8. PEPCID [Concomitant]
     Route: 048
  9. TOPROL-XL [Concomitant]
     Route: 065
     Dates: end: 20040802
  10. TOPROL-XL [Concomitant]
     Route: 065
     Dates: start: 20040802
  11. VASOTEC RPD [Concomitant]
     Route: 048
     Dates: start: 20040802, end: 20050401
  12. VASOTEC RPD [Concomitant]
     Route: 048
     Dates: start: 20050401
  13. VASOTEC RPD [Concomitant]
     Route: 048
  14. PRAVACHOL [Concomitant]
     Indication: HYPERLIPIDAEMIA
     Route: 065
  15. METHOCARBAMOL [Concomitant]
     Route: 065
     Dates: start: 20040101
  16. OXYCONTIN [Concomitant]
     Route: 065
     Dates: start: 20040801
  17. ASPIRIN [Concomitant]
     Route: 065
  18. CLARINEX [Concomitant]
     Route: 065
  19. CYCLOBENZAPRINE HYDROCHLORIDE [Concomitant]
     Route: 065
     Dates: start: 20040101
  20. CYCLOBENZAPRINE HYDROCHLORIDE [Concomitant]
     Route: 065

REACTIONS (11)
  - BRADYCARDIA [None]
  - CHEST PAIN [None]
  - CORONARY ARTERY DISEASE [None]
  - DIZZINESS [None]
  - ESSENTIAL HYPERTENSION [None]
  - FATIGUE [None]
  - HYPOAESTHESIA [None]
  - HYPOTENSION [None]
  - MYOCARDIAL INFARCTION [None]
  - PAIN [None]
  - PARAESTHESIA [None]
